FAERS Safety Report 9057199 (Version 1)
Quarter: 2013Q1

REPORT INFORMATION
  Report Type: Spontaneous
  Country: FR (occurrence: FR)
  Receive Date: 20130131
  Receipt Date: 20130131
  Transmission Date: 20140127
  Serious: Yes (Hospitalization)
  Sender: FDA-Public Use
  Company Number: FR-ROCHE-1185129

PATIENT
  Age: 52 Year
  Sex: Male

DRUGS (14)
  1. CELLCEPT [Suspect]
     Indication: RENAL TRANSPLANT
     Route: 048
     Dates: start: 20121203
  2. BACTRIM [Suspect]
     Indication: RENAL TRANSPLANT
     Route: 048
     Dates: start: 20121203, end: 20121209
  3. ADVAGRAF [Suspect]
     Indication: RENAL TRANSPLANT
     Route: 048
     Dates: start: 20121203
  4. LASILIX [Concomitant]
  5. BISOPROLOL [Concomitant]
  6. TAHOR [Concomitant]
  7. INEXIUM [Concomitant]
  8. RENAGEL [Concomitant]
  9. MUPIDERM [Concomitant]
  10. ATACAND [Concomitant]
  11. KAYEXALATE [Concomitant]
  12. CACIT [Concomitant]
  13. UVEDOSE [Concomitant]
  14. AZANTAC [Concomitant]

REACTIONS (2)
  - Hepatocellular injury [Recovered/Resolved]
  - Transaminases increased [Recovered/Resolved]
